FAERS Safety Report 8606738 (Version 3)
Quarter: 2014Q1

REPORT INFORMATION
  Report Type: Spontaneous
  Country: US (occurrence: US)
  Receive Date: 20120611
  Receipt Date: 20140131
  Transmission Date: 20141002
  Serious: Yes (Disabling)
  Sender: FDA-Public Use
  Company Number: US-ASTRAZENECA-2012SE35023

PATIENT
  Age: 44 Year
  Sex: Female

DRUGS (35)
  1. NEXIUM [Suspect]
     Indication: HYPERCHLORHYDRIA
     Route: 048
     Dates: start: 20070731
  2. NEXIUM [Suspect]
     Indication: GASTROOESOPHAGEAL REFLUX DISEASE
     Route: 048
     Dates: start: 20070731
  3. NEXIUM [Suspect]
     Indication: OESOPHAGITIS
     Route: 048
     Dates: start: 20070731
  4. PRILOSEC [Suspect]
     Indication: HYPERCHLORHYDRIA
     Route: 048
  5. PRILOSEC [Suspect]
     Indication: HYPERCHLORHYDRIA
     Dosage: GENERIC
     Route: 048
     Dates: start: 20101106
  6. PREVACID [Concomitant]
     Route: 048
     Dates: start: 20070406
  7. PREVACID [Concomitant]
     Route: 048
  8. PREVACID [Concomitant]
     Dosage: DELAYED RELEASE 15MG 1-4TIMES
  9. ZANTAC [Concomitant]
     Indication: HYPERCHLORHYDRIA
  10. ZANTAC [Concomitant]
     Indication: HYPERCHLORHYDRIA
     Dosage: 150 TWICE DAILY
  11. ZANTAC [Concomitant]
     Indication: HYPERCHLORHYDRIA
  12. ZANTAC [Concomitant]
     Indication: HYPERCHLORHYDRIA
  13. FAMOTIDINE [Concomitant]
  14. PEPTO-BISMOL [Concomitant]
  15. ROLAIDS [Concomitant]
  16. MYLANTA [Concomitant]
  17. FLUTICASONE PROP [Concomitant]
     Dosage: INHALE 1 PUFF IN EACH NOSTRIL AS DIRECTED
     Route: 055
     Dates: start: 20070406
  18. OSMOPREP [Concomitant]
     Dosage: AS DIRECTED
     Dates: start: 20070529
  19. ONDANSETRON [Concomitant]
     Indication: NAUSEA
     Dosage: DISSOLVE 1 TABLET BY MOUTH ON TONUE EVERY 4 HOURS AS NEEDED
     Route: 048
     Dates: start: 20100924
  20. ONDANSETRON [Concomitant]
     Indication: VOMITING
     Dosage: DISSOLVE 1 TABLET BY MOUTH ON TONUE EVERY 4 HOURS AS NEEDED
     Route: 048
     Dates: start: 20100924
  21. TRIAM/HCTZ [Concomitant]
     Dosage: 37.5/25 1 CAPSULE EVERY MORNING
     Route: 048
     Dates: start: 20100803
  22. HYDROCODONE/APAP [Concomitant]
     Dosage: 7.5/500 TAKE 1 TABLET  EVERY SIX HOUR AS NEEDED
     Route: 048
     Dates: start: 20110811
  23. MELOXICAM [Concomitant]
     Route: 048
     Dates: start: 20110811
  24. KETOPROFEN [Concomitant]
     Route: 048
     Dates: start: 20110501
  25. TRAMADOL HCL [Concomitant]
     Dosage: 1 TABLET EVERY 4 TO 6 HOURS
     Route: 048
     Dates: start: 20120315
  26. HYDROCHLOROTHIAZIDE [Concomitant]
     Route: 048
     Dates: start: 20120410
  27. MECLIZINE [Concomitant]
     Indication: VERTIGO
     Dosage: 1 TABLET DAILY AS NEEDED
     Route: 048
     Dates: start: 20120607
  28. SUMATRIPTAN [Concomitant]
     Indication: HEADACHE
     Dosage: EVERY 2 HOURS AS NEEDED
     Route: 048
     Dates: start: 20101129
  29. PROPRANOLOL [Concomitant]
     Route: 048
     Dates: start: 20101129
  30. NABUMETONE [Concomitant]
     Route: 048
     Dates: start: 20110127
  31. CYCLOBENZAPINE [Concomitant]
     Route: 048
     Dates: start: 20110208
  32. ZIPSOR [Concomitant]
     Route: 048
     Dates: start: 20110208
  33. ALPRAZOLAM [Concomitant]
     Route: 048
     Dates: start: 20110401
  34. ASPIRIN [Concomitant]
     Dates: start: 20090520
  35. VALIUM [Concomitant]
     Dates: start: 20090520

REACTIONS (15)
  - Joint injury [Unknown]
  - Back disorder [Unknown]
  - Arthralgia [Unknown]
  - Osteoporosis [Unknown]
  - Multiple fractures [Unknown]
  - Ligament sprain [Unknown]
  - Fall [Unknown]
  - Road traffic accident [Unknown]
  - Post-traumatic neck syndrome [Unknown]
  - Bone disorder [Unknown]
  - Nervous system disorder [Unknown]
  - Bone pain [Unknown]
  - Arthritis [Unknown]
  - Joint stiffness [Unknown]
  - Patellofemoral pain syndrome [Unknown]
